FAERS Safety Report 12647847 (Version 1)
Quarter: 2016Q3

REPORT INFORMATION
  Report Type: Spontaneous
  Country: US (occurrence: None)
  Receive Date: 20160811
  Receipt Date: 20160811
  Transmission Date: 20161109
  Serious: Yes (Hospitalization)
  Sender: FDA-Public Use
  Company Number: None

PATIENT
  Age: 69 Year
  Sex: Male
  Weight: 79.1 kg

DRUGS (3)
  1. LISINOPRIL. [Suspect]
     Active Substance: LISINOPRIL
     Indication: HYPERTENSION
     Route: 048
     Dates: start: 20090814, end: 20160718
  2. CLINDAMYCIN [Suspect]
     Active Substance: CLINDAMYCIN\CLINDAMYCIN PHOSPHATE
     Indication: PROPHYLAXIS
     Route: 042
     Dates: start: 20160719, end: 20160719
  3. CLINDAMYCIN [Suspect]
     Active Substance: CLINDAMYCIN\CLINDAMYCIN PHOSPHATE
     Indication: PREOPERATIVE CARE
     Route: 042
     Dates: start: 20160719, end: 20160719

REACTIONS (5)
  - No reaction on previous exposure to drug [None]
  - Procedural complication [None]
  - Dyspnoea [None]
  - Angioedema [None]
  - Endotracheal intubation complication [None]

NARRATIVE: CASE EVENT DATE: 20160719
